FAERS Safety Report 10334678 (Version 1)
Quarter: 2014Q3

REPORT INFORMATION
  Report Type: Spontaneous
  Country: US (occurrence: None)
  Receive Date: 20140721
  Receipt Date: 20140721
  Transmission Date: 20150326
  Serious: Yes (Disabling, Other)
  Sender: FDA-Public Use
  Company Number: None

PATIENT
  Age: 49 Year
  Sex: Female
  Weight: 61.24 kg

DRUGS (2)
  1. GRALISE [Suspect]
     Active Substance: GABAPENTIN
     Indication: NEURALGIA
     Dosage: TRIAL PACK TWICE DAILY TAKEN BY MOUTH
     Route: 048
     Dates: start: 20131124, end: 20131206
  2. GRALISE [Suspect]
     Active Substance: GABAPENTIN
     Indication: CONVULSION
     Dosage: TRIAL PACK TWICE DAILY TAKEN BY MOUTH
     Route: 048
     Dates: start: 20131124, end: 20131206

REACTIONS (1)
  - Brain stem stroke [None]

NARRATIVE: CASE EVENT DATE: 20131206
